FAERS Safety Report 5873258-X (Version None)
Quarter: 2008Q3

REPORT INFORMATION
  Report Type: 
  Country: None (occurrence: None)
  Receive Date: 20080905
  Receipt Date: 20080905
  Transmission Date: 20090109
  Serious: Yes (Hospitalization)
  Sender: FDA-Public Use
  Company Number: None

PATIENT
  Age: 2 Year
  Sex: Male

DRUGS (1)
  1. ABILIFY [Suspect]
     Indication: ACCIDENTAL EXPOSURE
     Dosage: 25 TABS PO
     Route: 048
     Dates: start: 20080902

REACTIONS (5)
  - ACCIDENTAL DRUG INTAKE BY CHILD [None]
  - BLOOD COUNT ABNORMAL [None]
  - CARDIO-RESPIRATORY ARREST [None]
  - INCORRECT DOSE ADMINISTERED [None]
  - MENTAL STATUS CHANGES [None]
